FAERS Safety Report 7720090-8 (Version None)
Quarter: 2011Q3

REPORT INFORMATION
  Report Type: 
  Country: None (occurrence: None)
  Receive Date: 20110824
  Receipt Date: 20110816
  Transmission Date: 20111222
  Serious: Yes (Hospitalization)
  Sender: FDA-Public Use
  Company Number: 2011001779

PATIENT
  Age: 72 Year
  Sex: Male

DRUGS (10)
  1. HYDROCHLOROTHIAZIDE [Concomitant]
  2. TAMSULOSIN HCL [Concomitant]
  3. AMLODIPINE [Concomitant]
  4. CODEINE PHOSPHATE (CODEINE PHOSPHATE) [Concomitant]
  5. MINOCYCLINE HCL [Concomitant]
  6. ERDOSTEINE (ERDOSTEINE) [Concomitant]
  7. ERLOTINIB HYDROCHLORIDE [Suspect]
     Indication: NON-SMALL CELL LUNG CANCER
     Dosage: 150 MG, UID/QD, ORAL
     Route: 048
     Dates: start: 20110328, end: 20110703
  8. MOSAPRIDE (MOSAPRIDE) [Concomitant]
  9. TRANEXAMIC ACID (TRANEXAMIC ACID) [Concomitant]
  10. PREDNISOLONE [Concomitant]

REACTIONS (1)
  - HAEMOPTYSIS [None]
